FAERS Safety Report 5584697-9 (Version None)
Quarter: 2008Q1

REPORT INFORMATION
  Report Type: 
  Country: None (occurrence: None)
  Receive Date: 20080103
  Receipt Date: 20071220
  Transmission Date: 20080703
  Serious: Yes (Other)
  Sender: FDA-Public Use
  Company Number: 2007-03556

PATIENT
  Age: 72 Year
  Sex: Male
  Weight: 61 kg

DRUGS (16)
  1. VELCADE [Suspect]
     Indication: MULTIPLE MYELOMA
     Dosage: 1.60 MG, INTRAVENOUS
     Route: 042
     Dates: start: 20070522, end: 20070706
  2. ORGADRONE (DEXAMETHASONE SODIUM PHOSPHAGE) [Concomitant]
  3. ALENDRONATE SODIUM [Concomitant]
  4. LAMIVUDINE [Concomitant]
  5. LANSOPRAZOLE [Concomitant]
  6. PURSENNID (SENNA LEAF) TABLET [Concomitant]
  7. BAKTAR (SULFAMETHOXAZOLE, TRIMETHOPRIM) TABLET [Concomitant]
  8. PANTOSIN (PANTETHINE) [Concomitant]
  9. WARFARIN POTASSIUM (WARFARIN POTASSIUM) TABLET [Concomitant]
  10. MAGNESIUM OXIDE (MAGNESIUM OXIDE) [Concomitant]
  11. KYTRIL [Concomitant]
  12. DIFLUCAN [Concomitant]
  13. ZOVIRAX [Concomitant]
  14. ITRACONAZOLE [Concomitant]
  15. MAXIPIME [Concomitant]
  16. HYDROCORTISONE SODIUM SUCCINATE [Concomitant]

REACTIONS (1)
  - ASTHMA [None]
